FAERS Safety Report 7885472-2 (Version None)
Quarter: 2011Q4

REPORT INFORMATION
  Report Type: 
  Country: None (occurrence: None)
  Receive Date: 20111102
  Receipt Date: 20111025
  Transmission Date: 20120403
  Serious: Yes (Other)
  Sender: FDA-Public Use
  Company Number: US-RB-031856-11

PATIENT
  Sex: Female

DRUGS (2)
  1. SUBOXONE [Suspect]
     Indication: DRUG DEPENDENCE
     Dosage: 6 - 8 MG DAILY
     Route: 060
     Dates: start: 20090101, end: 20110801
  2. CYMBALTA [Suspect]
     Indication: DEPRESSION
     Dosage: 60 MG DAILY
     Route: 048
     Dates: start: 20090101, end: 20110801

REACTIONS (4)
  - DRUG WITHDRAWAL SYNDROME [None]
  - DEPRESSION [None]
  - HEPATOMEGALY [None]
  - SUICIDAL IDEATION [None]
